FAERS Safety Report 25297435 (Version 1)
Quarter: 2025Q2

REPORT INFORMATION
  Report Type: Spontaneous
  Country: US (occurrence: US)
  Receive Date: 20250511
  Receipt Date: 20250511
  Transmission Date: 20250716
  Serious: No
  Sender: SANOFI AVENTIS
  Company Number: US-SA-2025SA132563

PATIENT
  Sex: Male

DRUGS (3)
  1. DUPIXENT [Suspect]
     Active Substance: DUPILUMAB
     Indication: Dermatitis atopic
     Dosage: 300 MG, QOW
     Route: 058
     Dates: start: 20240227
  2. ADAPALENE [Concomitant]
     Active Substance: ADAPALENE
  3. NAPROXEN [Concomitant]
     Active Substance: NAPROXEN

REACTIONS (3)
  - Sleep disorder [Unknown]
  - Rash [Unknown]
  - Pain [Unknown]
